FAERS Safety Report 18708986 (Version 1)
Quarter: 2021Q1

REPORT INFORMATION
  Report Type: Spontaneous
  Country: US (occurrence: US)
  Receive Date: 20210107
  Receipt Date: 20210107
  Transmission Date: 20210419
  Serious: No
  Sender: FDA-Public Use
  Company Number: US-GALDERMA-US2020029454

PATIENT
  Age: 62 Year
  Sex: Female

DRUGS (1)
  1. METRONIDAZOLE TOPICAL GEL, 0.75% [Suspect]
     Active Substance: METRONIDAZOLE
     Indication: ROSACEA
     Dosage: 0.75%
     Route: 061
     Dates: start: 20200503, end: 202006

REACTIONS (3)
  - Lymphadenopathy [Recovered/Resolved]
  - Drug ineffective [Unknown]
  - Ocular rosacea [Not Recovered/Not Resolved]

NARRATIVE: CASE EVENT DATE: 202005
